FAERS Safety Report 24683811 (Version 3)
Quarter: 2024Q4

REPORT INFORMATION
  Report Type: Spontaneous
  Country: AR (occurrence: AR)
  Receive Date: 20241202
  Receipt Date: 20241213
  Transmission Date: 20250114
  Serious: Yes (Hospitalization, Other)
  Sender: NOVARTIS
  Company Number: AR-002147023-NVSC2024AR064149

PATIENT
  Sex: Female

DRUGS (1)
  1. GLIVEC [Suspect]
     Active Substance: IMATINIB MESYLATE
     Indication: Chronic myeloid leukaemia
     Dosage: 400 MG, QD (1 X 400 MG)
     Route: 065

REACTIONS (6)
  - Cerebral haematoma [Unknown]
  - Injury [Unknown]
  - Hip fracture [Unknown]
  - Fall [Unknown]
  - Anaemia [Unknown]
  - Haemoglobin increased [Not Recovered/Not Resolved]
